FAERS Safety Report 25433828 (Version 1)
Quarter: 2025Q2

REPORT INFORMATION
  Report Type: Report from Study
  Country: KR (occurrence: KR)
  Receive Date: 20250613
  Receipt Date: 20250613
  Transmission Date: 20250717
  Serious: Yes (Hospitalization)
  Sender: TAKEDA
  Company Number: KR-TAKEDA-2025TUS054543

PATIENT
  Age: 56 Year
  Sex: Female
  Weight: 58 kg

DRUGS (10)
  1. MARIBAVIR [Suspect]
     Active Substance: MARIBAVIR
     Indication: Cytomegalovirus infection
     Dosage: 400 MILLIGRAM, BID
     Dates: start: 20250321, end: 20250512
  2. Dicamax [Concomitant]
     Indication: Cytomegalovirus infection
     Dosage: 1250 MILLIGRAM, QD
     Dates: start: 20250226
  3. PROGRAF [Concomitant]
     Active Substance: TACROLIMUS
     Indication: Cytomegalovirus infection
     Dosage: UNK UNK, BID
     Dates: start: 20241030
  4. Zoylex [Concomitant]
     Indication: Cytomegalovirus infection
     Dosage: UNK UNK, BID
     Dates: start: 20241030
  5. RUXOLITINIB [Concomitant]
     Active Substance: RUXOLITINIB
     Indication: Cytomegalovirus infection
     Dosage: UNK UNK, BID
     Dates: start: 20241210
  6. CRESTOR [Concomitant]
     Active Substance: ROSUVASTATIN CALCIUM
     Indication: Cytomegalovirus infection
     Dosage: UNK UNK, QD
     Dates: start: 2025
  7. Cacepin [Concomitant]
     Indication: Depression
     Dosage: UNK UNK, QD
     Dates: start: 2025
  8. Riperidon [Concomitant]
     Indication: Depression
     Dosage: UNK UNK, QD
     Dates: start: 2025
  9. TOUJEO [Concomitant]
     Active Substance: INSULIN GLARGINE
     Indication: Diabetes mellitus
  10. APIDRA [Concomitant]
     Active Substance: INSULIN GLULISINE
     Indication: Diabetes mellitus

REACTIONS (1)
  - Herpes zoster [Recovered/Resolved with Sequelae]

NARRATIVE: CASE EVENT DATE: 20250507
